FAERS Safety Report 7903405-7 (Version None)
Quarter: 2011Q4

REPORT INFORMATION
  Report Type: 
  Country: None (occurrence: None)
  Receive Date: 20111109
  Receipt Date: 20111102
  Transmission Date: 20120403
  Serious: No
  Sender: FDA-Public Use
  Company Number: US-AMGEN-USASP2011034463

PATIENT
  Age: 31 Year
  Sex: Male

DRUGS (1)
  1. ENBREL [Suspect]
     Indication: ANKYLOSING SPONDYLITIS
     Dosage: 50 MG, QWK
     Dates: start: 20090401, end: 20110401

REACTIONS (6)
  - CHILLS [None]
  - APHAGIA [None]
  - GROIN PAIN [None]
  - HEADACHE [None]
  - ABDOMINAL PAIN UPPER [None]
  - CONSTIPATION [None]
